FAERS Safety Report 6641355-7 (Version None)
Quarter: 2010Q1

REPORT INFORMATION
  Report Type: 
  Country: None (occurrence: None)
  Receive Date: 20100317
  Receipt Date: 20100317
  Transmission Date: 20100710
  Serious: No
  Sender: FDA-Public Use
  Company Number: None

PATIENT
  Age: 64 Year
  Sex: Male
  Weight: 72.5755 kg

DRUGS (1)
  1. CIPROFLOXACIN HYDROCHLORIDE [Suspect]
     Indication: HORDEOLUM
     Dosage: 2 DROPS 3 TIMES A DAY
     Dates: start: 20100222, end: 20100228

REACTIONS (6)
  - EYE IRRITATION [None]
  - EYE PAIN [None]
  - FOREIGN BODY SENSATION IN EYES [None]
  - NO THERAPEUTIC RESPONSE [None]
  - PRODUCT FORMULATION ISSUE [None]
  - REACTION TO DRUG EXCIPIENTS [None]
